FAERS Safety Report 26219391 (Version 1)
Quarter: 2025Q4

REPORT INFORMATION
  Report Type: Spontaneous
  Country: EU (occurrence: EU)
  Receive Date: 20251231
  Receipt Date: 20251231
  Transmission Date: 20260118
  Serious: Yes (Death, Other)
  Sender: MSN LABORATORIES PRIVATE LIMITED
  Company Number: None

PATIENT

DRUGS (12)
  1. AZACITIDINE [Suspect]
     Active Substance: AZACITIDINE
     Indication: Chronic myeloid leukaemia
     Route: 065
  2. AZACITIDINE [Suspect]
     Active Substance: AZACITIDINE
     Indication: Platelet-derived growth factor receptor gene mutation
  3. AZACITIDINE [Suspect]
     Active Substance: AZACITIDINE
     Indication: Chronic myeloid leukaemia
  4. AZACITIDINE [Suspect]
     Active Substance: AZACITIDINE
     Indication: Platelet-derived growth factor receptor gene mutation
  5. DASATINIB [Suspect]
     Active Substance: DASATINIB
     Indication: Chronic myeloid leukaemia
     Dosage: 100 MG,QD
     Route: 065
  6. DASATINIB [Suspect]
     Active Substance: DASATINIB
     Indication: Platelet-derived growth factor receptor gene mutation
  7. DASATINIB [Suspect]
     Active Substance: DASATINIB
     Indication: Chronic myeloid leukaemia
  8. DASATINIB [Suspect]
     Active Substance: DASATINIB
     Indication: Platelet-derived growth factor receptor gene mutation
  9. VENETOCLAX [Suspect]
     Active Substance: VENETOCLAX
     Indication: Chronic myeloid leukaemia
     Route: 065
  10. VENETOCLAX [Suspect]
     Active Substance: VENETOCLAX
     Indication: Platelet-derived growth factor receptor gene mutation
  11. VENETOCLAX [Suspect]
     Active Substance: VENETOCLAX
     Indication: Chronic myeloid leukaemia
  12. VENETOCLAX [Suspect]
     Active Substance: VENETOCLAX
     Indication: Platelet-derived growth factor receptor gene mutation

REACTIONS (4)
  - Sepsis [Fatal]
  - Neutropenia [Fatal]
  - Multiple organ dysfunction syndrome [Fatal]
  - Acute myeloid leukaemia [Fatal]
